FAERS Safety Report 8009038-9 (Version None)
Quarter: 2011Q4

REPORT INFORMATION
  Report Type: 
  Country: None (occurrence: None)
  Receive Date: 20111227
  Receipt Date: 20111220
  Transmission Date: 20120403
  Serious: Yes (Death, Hospitalization, Other)
  Sender: FDA-Public Use
  Company Number: US-CELGENEUS-163-21880-11071269

PATIENT
  Sex: Male

DRUGS (12)
  1. REVLIMID [Suspect]
     Indication: MULTIPLE MYELOMA
     Dosage: 25 MILLIGRAM
     Route: 048
     Dates: start: 20110408, end: 20110418
  2. DECADRON [Concomitant]
     Dosage: 20 MILLIGRAM
     Route: 065
  3. TEGRETOL [Concomitant]
     Route: 065
  4. FLOMAX [Concomitant]
     Route: 065
  5. ARANESP [Concomitant]
     Indication: RED BLOOD CELL COUNT DECREASED
     Route: 065
  6. REVLIMID [Suspect]
     Dosage: 15 MILLIGRAM
     Route: 048
     Dates: start: 20110520, end: 20110606
  7. DECADRON [Concomitant]
     Route: 065
     Dates: end: 20101201
  8. VELCADE [Concomitant]
     Route: 065
     Dates: end: 20101201
  9. VELCADE [Concomitant]
     Route: 065
  10. REVLIMID [Suspect]
     Dosage: 10 MILLIGRAM
     Route: 048
     Dates: start: 20110701
  11. NEXIUM [Concomitant]
     Route: 065
  12. NORVASC [Concomitant]
     Indication: HYPERTENSION
     Route: 065

REACTIONS (5)
  - DRUG INTOLERANCE [None]
  - DEATH [None]
  - SEPTIC SHOCK [None]
  - PANCYTOPENIA [None]
  - PNEUMONIA [None]
